FAERS Safety Report 26071600 (Version 1)
Quarter: 2025Q4

REPORT INFORMATION
  Report Type: Report from Study
  Country: CA (occurrence: None)
  Receive Date: 20251120
  Receipt Date: 20251120
  Transmission Date: 20260118
  Serious: Yes (Other)
  Sender: UCB
  Company Number: CA-UCBSA-2025073151

PATIENT
  Age: 55 Year

DRUGS (2)
  1. CERTOLIZUMAB PEGOL [Suspect]
     Active Substance: CERTOLIZUMAB PEGOL
     Indication: Rheumatoid arthritis
     Dosage: CIMZIA 400 MG / Q2WK X 3 / SC MILLIGRAM,400 MILLIGRAM,EV 2 WEEKS(QOW)
  2. Adalinumab [Concomitant]
     Indication: Product used for unknown indication
     Dosage: , ,

REACTIONS (4)
  - Haematochezia [Unknown]
  - Headache [Unknown]
  - Erythema [Unknown]
  - Skin warm [Unknown]
